FAERS Safety Report 17866668 (Version 1)
Quarter: 2020Q2

REPORT INFORMATION
  Report Type: Spontaneous
  Country: US (occurrence: US)
  Receive Date: 20200605
  Receipt Date: 20200605
  Transmission Date: 20200714
  Serious: No
  Sender: FDA-Public Use
  Company Number: US-SA-2020SA141236

PATIENT

DRUGS (1)
  1. DUPIXENT [Suspect]
     Active Substance: DUPILUMAB
     Indication: ECZEMA
     Dosage: UNK
     Dates: start: 202002

REACTIONS (11)
  - Loss of personal independence in daily activities [Unknown]
  - Facial pain [Unknown]
  - Eczema [Unknown]
  - Erythema [Unknown]
  - Skin infection [Unknown]
  - Pain in extremity [Unknown]
  - Rash erythematous [Unknown]
  - Drug ineffective [Unknown]
  - Skin exfoliation [Unknown]
  - Injection site pain [Unknown]
  - Dry skin [Unknown]
